FAERS Safety Report 11686909 (Version 1)
Quarter: 2015Q4

REPORT INFORMATION
  Report Type: Spontaneous
  Country: KR (occurrence: KR)
  Receive Date: 20151030
  Receipt Date: 20151030
  Transmission Date: 20160304
  Serious: Yes (Hospitalization)
  Sender: FDA-Public Use
  Company Number: KR-009507513-1510KOR013471

PATIENT
  Age: 63 Year
  Sex: Male
  Weight: 73.2 kg

DRUGS (26)
  1. TANTUM [Concomitant]
     Active Substance: BENZYDAMINE HYDROCHLORIDE
     Indication: PROPHYLAXIS
     Dosage: 100 ML, TID, GARGLE
     Dates: start: 20150807, end: 20150807
  2. CURAN [Concomitant]
     Indication: PROPHYLAXIS
     Dosage: 50 MG, TID
     Route: 042
     Dates: start: 20150810, end: 20150811
  3. VESICARE [Concomitant]
     Active Substance: SOLIFENACIN SUCCINATE
     Indication: PROPHYLAXIS
     Dosage: 5 MG, QD
     Route: 048
     Dates: start: 20150819, end: 20150825
  4. CETRAZOLE [Concomitant]
     Indication: INFECTION PROPHYLAXIS
     Dosage: 1 G, QD
     Route: 042
     Dates: start: 20150810, end: 20150811
  5. MEPERIDINE HYDROCHLORIDE. [Concomitant]
     Active Substance: MEPERIDINE HYDROCHLORIDE
     Indication: PROPHYLAXIS
     Dosage: 25 MG, ONCE
     Route: 030
     Dates: start: 20150810, end: 20150810
  6. SODIUM BICARBONATE. [Concomitant]
     Active Substance: SODIUM BICARBONATE
     Indication: PROPHYLAXIS
     Dosage: 1.68G/20ML
     Route: 042
     Dates: start: 20150819, end: 20150819
  7. HARNAL [Concomitant]
     Active Substance: TAMSULOSIN HYDROCHLORIDE
     Indication: PROPHYLAXIS
     Dosage: 0.2 MG, QD
     Route: 048
     Dates: start: 20150814, end: 20150825
  8. ALOXI [Concomitant]
     Active Substance: PALONOSETRON HYDROCHLORIDE
     Indication: DRUG THERAPY
     Dosage: 0.25 MG, ONCE
     Route: 042
     Dates: start: 20150811, end: 20150811
  9. LASIX [Concomitant]
     Active Substance: FUROSEMIDE
     Indication: PROPHYLAXIS
     Dosage: 40 MG, QD
     Route: 048
     Dates: start: 20150811, end: 20150811
  10. CLINIMIX [Concomitant]
     Active Substance: ALANINE\ARGININE\DEXTROSE\GLYCINE\HISTIDINE\ISOLEUCINE\LEUCINE\LYSINE\METHIONINE\PHENYLALANINE\PROLINE\SERINE\THREONINE\TRYPTOPHAN\TYROSINE\VALINE
     Indication: PROPHYLAXIS
     Dosage: 1.5 L, QD
     Route: 042
     Dates: start: 20150812, end: 20150819
  11. SPORANOX [Concomitant]
     Active Substance: ITRACONAZOLE
     Indication: ORAL CANDIDIASIS
     Dosage: 100 MG, QD
     Route: 048
     Dates: start: 20150819, end: 20150825
  12. MUCOSTEN [Concomitant]
     Indication: PROPHYLAXIS
     Dosage: 10% 10ML
     Route: 042
     Dates: start: 20150810, end: 20150813
  13. DUPHALAC [Concomitant]
     Active Substance: LACTULOSE
     Indication: CONSTIPATION PROPHYLAXIS
     Dosage: 15 ML, ONCE
     Route: 048
     Dates: start: 20150813, end: 20150813
  14. IRCODON [Concomitant]
     Indication: PROPHYLAXIS
     Dosage: 5 MG, QD
     Route: 048
     Dates: start: 20150815, end: 20150815
  15. TARGIN [Concomitant]
     Active Substance: NALOXONE HYDROCHLORIDE\OXYCODONE HYDROCHLORIDE
     Indication: PROPHYLAXIS
     Dosage: 1 DF, BID
     Route: 048
     Dates: start: 20150811, end: 20150825
  16. EMEND (FOSAPREPITANT DIMEGLUMINE) [Suspect]
     Active Substance: FOSAPREPITANT DIMEGLUMINE
     Indication: PROPHYLAXIS OF NAUSEA AND VOMITING
     Dosage: 150 MG, ONCE
     Route: 042
     Dates: start: 20150811, end: 20150811
  17. FLUOROURACIL. [Concomitant]
     Active Substance: FLUOROURACIL
     Indication: GASTRIC CANCER
     Dosage: 1860 MG, ONCE
     Route: 042
     Dates: start: 20150811, end: 20150814
  18. ALBIS [Concomitant]
     Active Substance: BISMUTH SUBCITRATE\RANITIDINE HYDROCHLORIDE\SUCRALFATE
     Indication: PROPHYLAXIS AGAINST GASTROINTESTINAL ULCER
     Dosage: 1 DF, BID
     Route: 048
     Dates: start: 20150807, end: 20150825
  19. MASI [Concomitant]
     Indication: PROPHYLAXIS
     Dosage: 2G/20ML
     Route: 042
     Dates: start: 20150811, end: 20150811
  20. MACPERAN [Concomitant]
     Indication: PROPHYLAXIS OF NAUSEA AND VOMITING
     Dosage: 5 MG, TID
     Route: 048
     Dates: start: 20150814, end: 20150818
  21. DEXAMETHASONE. [Concomitant]
     Active Substance: DEXAMETHASONE
     Indication: DRUG THERAPY
     Dosage: 8 MG, QD
     Route: 048
     Dates: start: 20150813, end: 20150815
  22. TAMIPOOL [Concomitant]
     Active Substance: VITAMINS
     Indication: VITAMIN SUPPLEMENTATION
     Dosage: 5 ML, QD
     Route: 042
     Dates: start: 20150807, end: 20150819
  23. MACPERAN [Concomitant]
     Indication: PROPHYLAXIS OF NAUSEA AND VOMITING
     Dosage: 10 MG, QD
     Route: 042
     Dates: start: 20150812, end: 20150812
  24. CISPLAN [Concomitant]
     Active Substance: CISPLATIN
     Indication: GASTRIC CANCER
     Dosage: 111.6 MG, ONCE
     Route: 042
     Dates: start: 20150811, end: 20150811
  25. DEXAMETHASONE SODIUM PHOSPHATE. [Concomitant]
     Active Substance: DEXAMETHASONE SODIUM PHOSPHATE
     Indication: DRUG THERAPY
     Dosage: 12 MG, ONCE
     Route: 042
     Dates: start: 20150812, end: 20150812
  26. FURTMAN [Concomitant]
     Indication: PROPHYLAXIS
     Dosage: 1 DF, QD
     Route: 048
     Dates: start: 20150812, end: 20150819

REACTIONS (4)
  - Oral candidiasis [Recovered/Resolved]
  - Constipation [Recovered/Resolved]
  - Erythema [Recovered/Resolved]
  - Pruritus [Recovered/Resolved]

NARRATIVE: CASE EVENT DATE: 20150820
